FAERS Safety Report 17185431 (Version 1)
Quarter: 2019Q4

REPORT INFORMATION
  Report Type: Spontaneous
  Country: SK (occurrence: SK)
  Receive Date: 20191220
  Receipt Date: 20191220
  Transmission Date: 20200122
  Serious: Yes (Hospitalization, Other)
  Sender: FDA-Public Use
  Company Number: SK-HORIZON-PRE-0574-2019

PATIENT
  Age: 44 Year
  Sex: Female

DRUGS (11)
  1. BISOPROLOL [Suspect]
     Active Substance: BISOPROLOL
     Indication: HYPERTENSION
     Dates: start: 1994
  2. HYDROCHLOROTHIAZIDE. [Concomitant]
     Active Substance: HYDROCHLOROTHIAZIDE
     Indication: HYPERTENSION
  3. LEVOCETIRIZINE [Concomitant]
     Active Substance: LEVOCETIRIZINE
  4. RILMENIDINE [Concomitant]
     Active Substance: RILMENIDINE
     Indication: HYPERTENSION
     Route: 042
  5. PREDNISONE. [Suspect]
     Active Substance: PREDNISONE
     Indication: INTERSTITIAL LUNG DISEASE
     Dosage: 40MG, QD
     Route: 048
     Dates: start: 20071121
  6. FOSTER [Concomitant]
     Active Substance: BECLOMETHASONE\FORMOTEROL
     Indication: PULMONARY FIBROSIS
     Dosage: BECLOMETHASONE 100 MCG,FORMOTEROL  6 MCG, 2 X1 SESSION
     Route: 055
     Dates: start: 2017
  7. PREDNISONE. [Suspect]
     Active Substance: PREDNISONE
     Indication: PRODUCT USED FOR UNKNOWN INDICATION
     Dosage: MAINTAINING DOSE OF 15 MG
  8. FUROSEMIDE. [Concomitant]
     Active Substance: FUROSEMIDE
     Indication: HYPERTENSION
  9. LOSARTAN. [Concomitant]
     Active Substance: LOSARTAN
     Indication: HYPERTENSION
  10. METHYLPREDNISOLONE. [Suspect]
     Active Substance: METHYLPREDNISOLONE
     Indication: INTERSTITIAL LUNG DISEASE
     Dosage: 250MG; 3 TIMES 250MG PER MONTH
  11. IVABRADINE HYDROCHLORIDE [Suspect]
     Active Substance: IVABRADINE HYDROCHLORIDE
     Indication: TACHYCARDIA
     Dosage: UNK UNK, QD

REACTIONS (12)
  - Swelling [Unknown]
  - Drug tolerance decreased [Unknown]
  - Urinary tract infection [Unknown]
  - Tachycardia [Unknown]
  - Hypertension [Unknown]
  - Oxygen saturation decreased [Unknown]
  - Dyspnoea [Unknown]
  - Drug abuse [Unknown]
  - Cough [Unknown]
  - Cervix carcinoma stage 0 [Unknown]
  - Condition aggravated [Unknown]
  - Interstitial lung disease [Not Recovered/Not Resolved]
